FAERS Safety Report 13585823 (Version 3)
Quarter: 2017Q2

REPORT INFORMATION
  Report Type: Spontaneous
  Country: FR (occurrence: FR)
  Receive Date: 20170526
  Receipt Date: 20170622
  Transmission Date: 20170830
  Serious: Yes (Other)
  Sender: FDA-Public Use
  Company Number: FR-PFIZER INC-2017232840

PATIENT
  Age: 55 Year
  Sex: Female
  Weight: 57 kg

DRUGS (1)
  1. EPIPEN [Suspect]
     Active Substance: EPINEPHRINE
     Dosage: UNK
     Route: 030
     Dates: start: 20170404, end: 20170404

REACTIONS (4)
  - Injection site haematoma [Recovered/Resolved]
  - Expired product administered [Recovered/Resolved]
  - Accidental exposure to product [Recovered/Resolved]
  - Vasoconstriction [Recovered/Resolved]

NARRATIVE: CASE EVENT DATE: 20170404
